FAERS Safety Report 9274347 (Version 2)
Quarter: 2013Q2

REPORT INFORMATION
  Report Type: Spontaneous
  Country: DE (occurrence: DE)
  Receive Date: 20130506
  Receipt Date: 20130523
  Transmission Date: 20140414
  Serious: Yes (Death, Other)
  Sender: FDA-Public Use
  Company Number: DE-ELI_LILLY_AND_COMPANY-DE201304008008

PATIENT
  Age: 82 Year
  Sex: Female
  Weight: 35 kg

DRUGS (3)
  1. FORSTEO [Suspect]
     Indication: OSTEOPOROSIS
     Dosage: 20 UG, QD
     Route: 058
     Dates: start: 20120626
  2. MORPHINE [Concomitant]
  3. DEKRISTOL [Concomitant]
     Dosage: 200000 IU, OTHER

REACTIONS (3)
  - Death [Fatal]
  - Coma [Unknown]
  - Eating disorder [Unknown]
